FAERS Safety Report 6742746-6 (Version None)
Quarter: 2010Q2

REPORT INFORMATION
  Report Type: 
  Country: None (occurrence: None)
  Receive Date: 20100526
  Receipt Date: 20091109
  Transmission Date: 20101027
  Serious: No
  Sender: FDA-Public Use
  Company Number: US-ABBOTT-09P-163-0607927-00

PATIENT
  Sex: Female
  Weight: 68.1 kg

DRUGS (5)
  1. ZEMPLAR [Suspect]
     Indication: RENAL FAILURE CHRONIC
     Route: 048
     Dates: start: 20060101
  2. PROCRIT [Concomitant]
     Indication: ANAEMIA
     Route: 058
     Dates: start: 20060101
  3. IRON [Concomitant]
     Indication: ANAEMIA
     Route: 048
     Dates: start: 20060101
  4. VITAMIN B-12 [Concomitant]
     Indication: ANAEMIA
     Route: 048
  5. HCTZ [Concomitant]
     Indication: HYPERTENSION
     Route: 048

REACTIONS (4)
  - ASTHENIA [None]
  - BLOOD CALCIUM INCREASED [None]
  - HAEMOGLOBIN DECREASED [None]
  - MYALGIA [None]
